FAERS Safety Report 8532045-4 (Version None)
Quarter: 2012Q3

REPORT INFORMATION
  Report Type: 
  Country: None (occurrence: None)
  Receive Date: 20120723
  Receipt Date: 20120716
  Transmission Date: 20120928
  Serious: Yes (Hospitalization)
  Sender: FDA-Public Use
  Company Number: US-GLAXOSMITHKLINE-A0970570A

PATIENT
  Age: 59 Year

DRUGS (6)
  1. CARVEDILOL [Suspect]
     Dates: start: 20110504, end: 20110509
  2. SPIRONOLACTONE [Suspect]
     Dates: start: 20110505, end: 20110509
  3. TORSEMIDE [Suspect]
  4. FUROSEMIDE [Suspect]
  5. BLINDED TRIAL MEDICATION [Concomitant]
     Indication: TYPE 2 DIABETES MELLITUS
     Dates: start: 20110325
  6. ASPIRIN [Concomitant]

REACTIONS (2)
  - HYPOTENSION [None]
  - RENAL FAILURE [None]
